FAERS Safety Report 5793399-5 (Version None)
Quarter: 2008Q2

REPORT INFORMATION
  Report Type: 
  Country: None (occurrence: None)
  Receive Date: 20080627
  Receipt Date: 20080624
  Transmission Date: 20081010
  Serious: Yes (Hospitalization)
  Sender: FDA-Public Use
  Company Number: CN-ASTRAZENECA-2008AP04909

PATIENT
  Age: 35 Year
  Sex: Male

DRUGS (1)
  1. NAROPIN [Suspect]
     Indication: NERVE BLOCK
     Dosage: 2 X 20 ML ADMINISTERED
     Route: 053

REACTIONS (7)
  - BLOOD PRESSURE DECREASED [None]
  - HEART RATE DECREASED [None]
  - LOSS OF CONSCIOUSNESS [None]
  - MUSCLE SPASMS [None]
  - MYDRIASIS [None]
  - RESPIRATORY ARREST [None]
  - SPEECH DISORDER [None]
